FAERS Safety Report 9552972 (Version 2)
Quarter: 2013Q4

REPORT INFORMATION
  Report Type: Spontaneous
  Country: CH (occurrence: CH)
  Receive Date: 20130925
  Receipt Date: 20131008
  Transmission Date: 20140711
  Serious: Yes (Hospitalization)
  Sender: FDA-Public Use
  Company Number: CH-ELI_LILLY_AND_COMPANY-CH201309006230

PATIENT
  Age: 80 Year
  Sex: Male
  Weight: 78 kg

DRUGS (3)
  1. EFIENT [Suspect]
     Indication: STENT PLACEMENT
     Dosage: 60 MG, SINGLE
     Route: 048
     Dates: start: 20110624, end: 20110624
  2. EFIENT [Suspect]
     Dosage: 5 MG, QD
     Route: 048
     Dates: start: 20110625, end: 20120101
  3. ASPIRIN [Concomitant]

REACTIONS (2)
  - Thrombosis in device [Recovered/Resolved]
  - Angina pectoris [Recovered/Resolved]
